FAERS Safety Report 24211632 (Version 1)
Quarter: 2024Q3

REPORT INFORMATION
  Report Type: Spontaneous
  Country: US (occurrence: US)
  Receive Date: 20240814
  Receipt Date: 20240814
  Transmission Date: 20241017
  Serious: No
  Sender: MERCK
  Company Number: US-009507513-2407USA012809

PATIENT
  Sex: Male

DRUGS (1)
  1. KEYTRUDA [Suspect]
     Active Substance: PEMBROLIZUMAB
     Indication: Renal cell carcinoma
     Dosage: UNK
     Dates: start: 2023

REACTIONS (1)
  - Ill-defined disorder [Unknown]
